FAERS Safety Report 9613527 (Version 1)
Quarter: 2013Q4

REPORT INFORMATION
  Report Type: Spontaneous
  Country: FR (occurrence: FR)
  Receive Date: 20131010
  Receipt Date: 20131010
  Transmission Date: 20140711
  Serious: Yes (Other)
  Sender: FDA-Public Use
  Company Number: FR-PFIZER INC-2013290937

PATIENT
  Age: 75 Year
  Sex: Female

DRUGS (8)
  1. SERTRALINE [Suspect]
     Indication: MAJOR DEPRESSION
     Dosage: 50 MG, DAILY
  2. SERTRALINE [Interacting]
     Dosage: 100 MG, DAILY
  3. RASAGILINE [Interacting]
     Indication: PARKINSON^S DISEASE
     Dosage: 1 MG, 4X/DAY
  4. RASAGILINE [Interacting]
     Dosage: 1 MG, DAILY
  5. AMANTADINE [Interacting]
     Indication: PARKINSON^S DISEASE
     Dosage: 100 MG, 2X/DAY
  6. LEVODOPA [Interacting]
     Indication: PARKINSON^S DISEASE
     Dosage: 200 MG, 3X/DAY
  7. CARBIDOPA [Concomitant]
     Indication: PARKINSON^S DISEASE
     Dosage: 50 MG, 3X/DAY
  8. ENTACAPONE [Concomitant]
     Indication: PARKINSON^S DISEASE
     Dosage: 200 MG, 3X/DAY

REACTIONS (2)
  - Drug interaction [Recovered/Resolved]
  - Serotonin syndrome [Recovered/Resolved]
